FAERS Safety Report 9079966 (Version 1)
Quarter: 2013Q1

REPORT INFORMATION
  Report Type: Spontaneous
  Country: GB (occurrence: GB)
  Receive Date: 20130215
  Receipt Date: 20130215
  Transmission Date: 20140127
  Serious: Yes (Other)
  Sender: FDA-Public Use
  Company Number: GB-PFIZER INC-2013058937

PATIENT
  Age: 38 Year
  Sex: Male
  Weight: 49.2 kg

DRUGS (7)
  1. LYRICA [Suspect]
     Indication: PAIN
     Dosage: 75 MG, ALTERNATE DAY
     Route: 048
     Dates: start: 20130125, end: 20130127
  2. PARACETAMOL [Concomitant]
  3. FUSIDIC ACID [Concomitant]
     Dates: start: 20130111
  4. TAZOCIN [Concomitant]
     Dates: start: 20130108, end: 20130129
  5. CLEXANE [Concomitant]
  6. NORMAL SALINE [Concomitant]
     Route: 055
  7. MORPHINE [Concomitant]
     Indication: ANALGESIC THERAPY
     Route: 042
     Dates: start: 20130108, end: 20130128

REACTIONS (2)
  - Rash [Recovered/Resolved]
  - Neutropenia [Not Recovered/Not Resolved]
